FAERS Safety Report 8101823-8 (Version None)
Quarter: 2012Q1

REPORT INFORMATION
  Report Type: 
  Country: None (occurrence: None)
  Receive Date: 20120131
  Receipt Date: 20120125
  Transmission Date: 20120608
  Serious: Yes (Hospitalization, Other)
  Sender: FDA-Public Use
  Company Number: PHHY2012BR007396

PATIENT
  Sex: Female

DRUGS (6)
  1. BROMAZEPAM [Concomitant]
     Dosage: 6 MG, UNK
  2. GALVUS MET [Suspect]
     Indication: DIABETES MELLITUS
     Dosage: 2 TABLETS DAILY
  3. PLAMET [Concomitant]
     Dosage: 20 MG, UNK
  4. ACETAMINOPHEN W/ CODEINE [Concomitant]
     Dosage: UNK
  5. DIOVAN HCT [Suspect]
     Indication: HYPERTENSION
     Dosage: 2 TABLETS (160/12.5 MG) DAILY
  6. SIMVASTATIN [Concomitant]
     Dosage: 20 MG, UNK

REACTIONS (2)
  - ABDOMINAL NEOPLASM [None]
  - HERNIA [None]
